FAERS Safety Report 6449089-9 (Version None)
Quarter: 2009Q4

REPORT INFORMATION
  Report Type: 
  Country: None (occurrence: None)
  Receive Date: 20091119
  Receipt Date: 20091119
  Transmission Date: 20100525
  Serious: Yes (Other)
  Sender: FDA-Public Use
  Company Number: None

PATIENT
  Sex: Male
  Weight: 79.8331 kg

DRUGS (1)
  1. PROPECIA [Suspect]
     Indication: ANDROGENETIC ALOPECIA
     Dosage: 1 PILL PER DAY 1 PER DAY PO
     Route: 048
     Dates: start: 20080601, end: 20090220

REACTIONS (7)
  - BREAST PAIN [None]
  - ERECTILE DYSFUNCTION [None]
  - GROIN PAIN [None]
  - LOSS OF LIBIDO [None]
  - PENILE PAIN [None]
  - QUALITY OF LIFE DECREASED [None]
  - TESTICULAR PAIN [None]
